FAERS Safety Report 8825902 (Version 1)
Quarter: 2012Q4

REPORT INFORMATION
  Report Type: 
  Country: US (occurrence: US)
  Receive Date: 20121005
  Receipt Date: 20121005
  Transmission Date: 20130627
  Serious: Yes (Other)
  Sender: FDA-Public Use
  Company Number: US-ROCHE-1131407

PATIENT
  Sex: Male

DRUGS (2)
  1. RITUXAN [Suspect]
     Indication: MANTLE CELL LYMPHOMA RECURRENT
     Route: 065
     Dates: start: 20000315
  2. RITUXAN [Suspect]
     Indication: HODGKIN^S DISEASE RECURRENT

REACTIONS (2)
  - Fatigue [Unknown]
  - Osteonecrosis [Unknown]
